FAERS Safety Report 13207236 (Version 1)
Quarter: 2017Q1

REPORT INFORMATION
  Report Type: Spontaneous
  Country: US (occurrence: US)
  Receive Date: 20170209
  Receipt Date: 20170209
  Transmission Date: 20170428
  Serious: No
  Sender: FDA-Public Use
  Company Number: None

PATIENT
  Age: 75 Year
  Sex: Female

DRUGS (10)
  1. DULOXETINE. [Concomitant]
     Active Substance: DULOXETINE
  2. VITAMIN E [Concomitant]
     Active Substance: .ALPHA.-TOCOPHEROL
  3. OCCUVITE [Concomitant]
  4. FLEXERIL [Concomitant]
     Active Substance: CYCLOBENZAPRINE HYDROCHLORIDE
  5. LUMIGAN [Concomitant]
     Active Substance: BIMATOPROST
  6. VITAMIN D3 [Concomitant]
     Active Substance: CHOLECALCIFEROL
  7. TRAMADOL. [Suspect]
     Active Substance: TRAMADOL
     Indication: PAIN
     Route: 048
  8. OMEPRAZOLE. [Concomitant]
     Active Substance: OMEPRAZOLE
  9. CARVEDILOL. [Concomitant]
     Active Substance: CARVEDILOL
  10. LEVOTHYROXINE. [Concomitant]
     Active Substance: LEVOTHYROXINE

REACTIONS (2)
  - Pruritus [None]
  - Headache [None]

NARRATIVE: CASE EVENT DATE: 20170208
